FAERS Safety Report 13758746 (Version 1)
Quarter: 2017Q3

REPORT INFORMATION
  Report Type: Report from Study
  Country: US (occurrence: US)
  Receive Date: 20170717
  Receipt Date: 20170717
  Transmission Date: 20171127
  Serious: Yes (Other)
  Sender: FDA-Public Use
  Company Number: US-AMGEN-USASL2017089676

PATIENT
  Age: 59 Year
  Sex: Female

DRUGS (1)
  1. REPATHA [Suspect]
     Active Substance: EVOLOCUMAB
     Indication: HYPERCHOLESTEROLAEMIA
     Dosage: 420 MG, QMO
     Route: 065
     Dates: start: 201705

REACTIONS (7)
  - Injection site urticaria [Recovered/Resolved]
  - Application site pain [Unknown]
  - Dehydration [Recovering/Resolving]
  - Fear of injection [Unknown]
  - Application site mass [Recovered/Resolved]
  - Influenza [Recovering/Resolving]
  - Gastric infection [Unknown]

NARRATIVE: CASE EVENT DATE: 20170609
